FAERS Safety Report 8462069-7 (Version None)
Quarter: 2012Q2

REPORT INFORMATION
  Report Type: 
  Country: None (occurrence: None)
  Receive Date: 20120323
  Receipt Date: 20111205
  Transmission Date: 20120825
  Serious: Yes (Other)
  Sender: FDA-Public Use
  Company Number: 163-21880-11100563

PATIENT
  Age: 73 Year
  Sex: Female
  Weight: 44.4525 kg

DRUGS (8)
  1. METOPROLOL TARTRATE [Concomitant]
  2. REVLIMID [Suspect]
     Indication: LYMPHOMA
     Dosage: 10 MG, 21/7, PO
     Route: 048
     Dates: start: 20110930
  3. BACTROBAN [Concomitant]
  4. VICODIN [Concomitant]
  5. BENADRYL [Concomitant]
  6. LORAZEPAM [Concomitant]
  7. OMEPRAZOLE [Concomitant]
  8. BACTRIM [Concomitant]

REACTIONS (2)
  - RASH GENERALISED [None]
  - RASH [None]
